FAERS Safety Report 16230102 (Version 1)
Quarter: 2019Q2

REPORT INFORMATION
  Report Type: Spontaneous
  Country: ES (occurrence: ES)
  Receive Date: 20190423
  Receipt Date: 20190423
  Transmission Date: 20190711
  Serious: Yes (Hospitalization)
  Sender: FDA-Public Use
  Company Number: ES-EISAI MEDICAL RESEARCH-EC-2019-055142

PATIENT
  Age: 37 Year
  Sex: Male

DRUGS (6)
  1. LENVATINIB [Suspect]
     Active Substance: LENVATINIB
     Dosage: DOSAGE REDUCED (NOT REPORTED)
     Route: 048
     Dates: start: 201704
  2. ENALAPRIL BELMAC [Concomitant]
     Indication: HYPERTENSION
     Route: 048
     Dates: start: 20160308
  3. ATENOLOL. [Concomitant]
     Active Substance: ATENOLOL
     Indication: HYPERTENSION
     Route: 048
     Dates: start: 201606
  4. LENVATINIB [Suspect]
     Active Substance: LENVATINIB
     Indication: POORLY DIFFERENTIATED THYROID CARCINOMA
     Route: 048
     Dates: start: 20160118, end: 201704
  5. LEVOTIROXINA SODICA [Concomitant]
     Active Substance: LEVOTHYROXINE SODIUM
     Indication: HYPOTHYROIDISM
     Dates: start: 201610
  6. ROCALTROL [Concomitant]
     Active Substance: CALCITRIOL
     Indication: HYPOPARATHYROIDISM
     Route: 048
     Dates: start: 20151110

REACTIONS (1)
  - Acute coronary syndrome [Recovered/Resolved with Sequelae]

NARRATIVE: CASE EVENT DATE: 20170403
